FAERS Safety Report 25684849 (Version 1)
Quarter: 2025Q3

REPORT INFORMATION
  Report Type: Spontaneous
  Country: EU (occurrence: EU)
  Receive Date: 20250815
  Receipt Date: 20250815
  Transmission Date: 20251020
  Serious: Yes (Hospitalization)
  Sender: BAYER HEALTHCARE PHARMACEUTICALS INC.
  Company Number: EU-BAYER-2025A104742

PATIENT
  Age: 34 Year
  Sex: Female

DRUGS (1)
  1. MIRENA [Suspect]
     Active Substance: LEVONORGESTREL
     Dosage: 20?G/DAY
     Route: 015
     Dates: start: 202107, end: 202404

REACTIONS (5)
  - Restlessness [Recovering/Resolving]
  - Depression [Recovering/Resolving]
  - Panic attack [Recovering/Resolving]
  - Acne [Recovering/Resolving]
  - Attention deficit hyperactivity disorder [None]

NARRATIVE: CASE EVENT DATE: 20211001
